FAERS Safety Report 4269897-2 (Version None)
Quarter: 2004Q1

REPORT INFORMATION
  Report Type: 
  Country: None (occurrence: None)
  Receive Date: 20040112
  Receipt Date: 20040112
  Transmission Date: 20041129
  Serious: Yes (Hospitalization)
  Sender: FDA-Public Use
  Company Number: None

PATIENT
  Age: 71 Year
  Sex: Male

DRUGS (8)
  1. WARFARIN SODIUM [Suspect]
     Dosage: 5 MG QD T, TH, SS 2.5 MG QD MWF
     Dates: start: 20000401
  2. ASPIRIN [Suspect]
     Indication: CORONARY ARTERY DISEASE
     Dosage: 81 MG QD
     Dates: start: 20000901
  3. LOVASTATIN [Concomitant]
  4. DIGOXIN [Concomitant]
  5. FOSINOPRIL SODIUM [Concomitant]
  6. COLCHICINE [Concomitant]
  7. KCL TAB [Concomitant]
  8. CARVEDILOL [Concomitant]

REACTIONS (1)
  - INTERNATIONAL NORMALISED RATIO INCREASED [None]
